FAERS Safety Report 9451009 (Version 1)
Quarter: 2013Q3

REPORT INFORMATION
  Report Type: Spontaneous
  Country: DK (occurrence: None)
  Receive Date: 20130807
  Receipt Date: 20130807
  Transmission Date: 20140515
  Serious: Yes (Hospitalization, Congenital Anomaly, Other)
  Sender: FDA-Public Use
  Company Number: AUR-APL-2013-06441

PATIENT
  Age: 1 Month
  Sex: Female
  Weight: 2.3 kg

DRUGS (1)
  1. LAMOTRIGINE (LAMOTRIGINE) [Suspect]
     Dosage: (200 MG, 2 IN 1 D)
     Route: 064

REACTIONS (3)
  - DiGeorge^s syndrome [None]
  - Patent ductus arteriosus [None]
  - Maternal drugs affecting foetus [None]
